FAERS Safety Report 11404421 (Version 3)
Quarter: 2015Q4

REPORT INFORMATION
  Report Type: Spontaneous
  Country: US (occurrence: US)
  Receive Date: 20150821
  Receipt Date: 20151202
  Transmission Date: 20160304
  Serious: Yes (Hospitalization, Other)
  Sender: FDA-Public Use
  Company Number: US-PFIZER INC-2015272345

PATIENT
  Age: 65 Year
  Sex: Male
  Weight: 113 kg

DRUGS (2)
  1. INLYTA [Suspect]
     Active Substance: AXITINIB
     Indication: NEOPLASM MALIGNANT
     Dosage: 5 MG, 2X/DAY(TAKEN EVERY 12 HOURS)
     Dates: start: 2011, end: 201510
  2. INLYTA [Suspect]
     Active Substance: AXITINIB
     Dosage: 5 MG, 2X/DAY(TAKEN EVERY 12 HOURS)
     Dates: start: 2015

REACTIONS (9)
  - Diarrhoea [Not Recovered/Not Resolved]
  - Viral infection [Unknown]
  - Acute kidney injury [Not Recovered/Not Resolved]
  - Blood pressure decreased [Not Recovered/Not Resolved]
  - Dehydration [Recovered/Resolved]
  - Dizziness [Unknown]
  - Fall [Recovered/Resolved]
  - Head injury [Unknown]
  - Headache [Unknown]

NARRATIVE: CASE EVENT DATE: 201510
